FAERS Safety Report 19293271 (Version 1)
Quarter: 2021Q2

REPORT INFORMATION
  Report Type: Spontaneous
  Country: US (occurrence: US)
  Receive Date: 20210523
  Receipt Date: 20210523
  Transmission Date: 20210717
  Serious: Yes (Other)
  Sender: FDA-Public Use
  Company Number: None

PATIENT
  Age: 27 Year
  Sex: Female
  Weight: 54 kg

DRUGS (3)
  1. MONTELUKAST SOD 10MG TABLET [Suspect]
     Active Substance: MONTELUKAST SODIUM
     Indication: RHINITIS ALLERGIC
     Dosage: ?          QUANTITY:1 TABLET(S);?
     Route: 048
     Dates: start: 20210422
  2. NEXPLANON [Concomitant]
     Active Substance: ETONOGESTREL
  3. FLUTICASONE PROP [Concomitant]
     Active Substance: FLUTICASONE PROPIONATE

REACTIONS (4)
  - Crying [None]
  - Feelings of worthlessness [None]
  - Depression [None]
  - Suicidal ideation [None]

NARRATIVE: CASE EVENT DATE: 20210512
